FAERS Safety Report 15770181 (Version 1)
Quarter: 2018Q4

REPORT INFORMATION
  Report Type: Spontaneous
  Country: US (occurrence: US)
  Receive Date: 20181227
  Receipt Date: 20181227
  Transmission Date: 20190205
  Serious: No
  Sender: FDA-Public Use
  Company Number: None

PATIENT
  Sex: Female
  Weight: 69.75 kg

DRUGS (1)
  1. FYCOMPA [Suspect]
     Active Substance: PERAMPANEL
     Indication: SEIZURE
     Dosage: ?          QUANTITY:1 TABLET(S);?
     Route: 048
     Dates: end: 20181227

REACTIONS (8)
  - Anger [None]
  - Depression [None]
  - Aggression [None]
  - Thinking abnormal [None]
  - Hostility [None]
  - Suicidal ideation [None]
  - Delusional perception [None]
  - Memory impairment [None]
